FAERS Safety Report 8855001 (Version 2)
Quarter: 2012Q4

REPORT INFORMATION
  Report Type: 
  Country: US (occurrence: US)
  Receive Date: 20121023
  Receipt Date: 20121217
  Transmission Date: 20130627
  Serious: No
  Sender: FDA-Public Use
  Company Number: US-PFIZER INC-2012259597

PATIENT
  Age: 52 Year
  Sex: Male
  Weight: 91 kg

DRUGS (3)
  1. AMLODIPINE BESILATE [Suspect]
     Indication: HYPERTENSION
     Dosage: 10 mg, 1x/day
     Route: 048
     Dates: start: 20120322
  2. MELOXICAM [Suspect]
     Indication: MUSCLE PAIN
     Dosage: UNK
     Dates: start: 20121016
  3. MELOXICAM [Suspect]
     Indication: MUSCLE CRAMP

REACTIONS (2)
  - Muscle injury [Not Recovered/Not Resolved]
  - Oedema peripheral [Recovered/Resolved]
